FAERS Safety Report 10662831 (Version 2)
Quarter: 2014Q4

REPORT INFORMATION
  Report Type: Report from Study
  Country: US (occurrence: US)
  Receive Date: 20141218
  Receipt Date: 20141218
  Transmission Date: 20150529
  Serious: Yes (Hospitalization, Other)
  Sender: FDA-Public Use
  Company Number: US-SA-2014SA094539

PATIENT
  Age: 54 Year
  Sex: Female

DRUGS (3)
  1. ZOLOFT [Concomitant]
     Active Substance: SERTRALINE HYDROCHLORIDE
     Route: 065
  2. AUBAGIO [Suspect]
     Active Substance: TERIFLUNOMIDE
     Indication: MULTIPLE SCLEROSIS
     Route: 048
     Dates: start: 20140615, end: 20140715
  3. AUBAGIO [Suspect]
     Active Substance: TERIFLUNOMIDE
     Indication: MULTIPLE SCLEROSIS
     Route: 048
     Dates: start: 20140716

REACTIONS (13)
  - Headache [Unknown]
  - Back pain [Unknown]
  - Malnutrition [Unknown]
  - Hysterectomy [Unknown]
  - Gastric bypass [Unknown]
  - Hypoaesthesia [Unknown]
  - Alopecia [Unknown]
  - Feeding disorder [Unknown]
  - Chromaturia [Unknown]
  - Migraine [Unknown]
  - Weight decreased [Unknown]
  - Paraesthesia [Unknown]
  - Petechiae [Unknown]

NARRATIVE: CASE EVENT DATE: 2014
